FAERS Safety Report 5895309-9 (Version None)
Quarter: 2008Q3

REPORT INFORMATION
  Report Type: 
  Country: None (occurrence: None)
  Receive Date: 20080924
  Receipt Date: 20080922
  Transmission Date: 20090109
  Serious: Yes (Other)
  Sender: FDA-Public Use
  Company Number: CN-ASTRAZENECA-2008AP07388

PATIENT

DRUGS (1)
  1. PULMICORT-100 [Suspect]
     Route: 055

REACTIONS (1)
  - FUNGAL INFECTION [None]
